FAERS Safety Report 7589471-X (Version None)
Quarter: 2011Q3

REPORT INFORMATION
  Report Type: 
  Country: None (occurrence: None)
  Receive Date: 20110705
  Receipt Date: 20110622
  Transmission Date: 20111222
  Serious: Yes (Other)
  Sender: FDA-Public Use
  Company Number: JP-ROCHE-779593

PATIENT
  Sex: Female
  Weight: 57 kg

DRUGS (23)
  1. ACTEMRA [Suspect]
     Indication: RHEUMATOID ARTHRITIS
     Dosage: DOSAGE IS UNCERTAIN
     Route: 041
     Dates: start: 20081209, end: 20110402
  2. ALFAROL [Concomitant]
     Route: 048
     Dates: start: 20100410
  3. HIRUDOID [Concomitant]
     Dates: start: 20110410
  4. ZOLPIDEM [Concomitant]
     Route: 048
  5. ACTEMRA [Suspect]
     Route: 041
     Dates: start: 20100410, end: 20110402
  6. LEVOFLOXACIN [Concomitant]
     Route: 048
     Dates: start: 20110604, end: 20110617
  7. ZOLPIDEM [Concomitant]
     Dates: start: 20110507
  8. LEVOFLOXACIN [Concomitant]
     Route: 048
     Dates: start: 20110402, end: 20110415
  9. PREDNISOLONE [Concomitant]
     Route: 048
     Dates: start: 20100410
  10. ASPARA K [Concomitant]
     Route: 048
     Dates: start: 20110207, end: 20110505
  11. CLARITHROMYCIN [Concomitant]
     Route: 048
     Dates: start: 20100410, end: 20110107
  12. SULFAMETHOXAZOLE [Concomitant]
     Route: 048
     Dates: start: 20110604, end: 20110608
  13. MEROPENEM [Concomitant]
     Dates: start: 20110418, end: 20110418
  14. CELECOXIB [Concomitant]
     Route: 048
  15. ANPLAG [Concomitant]
     Dates: start: 20110416
  16. RHEUMATREX [Concomitant]
     Route: 048
  17. LANSOPRAZOLE [Concomitant]
     Route: 048
     Dates: start: 20100410
  18. ASPARA K [Concomitant]
     Route: 048
     Dates: start: 20110506, end: 20110516
  19. LENDORMIN [Concomitant]
     Route: 048
     Dates: start: 20100410, end: 20110107
  20. CEFDINIR [Concomitant]
     Dates: start: 20110416, end: 20110506
  21. PREDNISOLONE [Concomitant]
     Route: 048
  22. ANPLAG [Concomitant]
     Dates: start: 20100928, end: 20101105
  23. MINOCYCLINE HCL [Concomitant]
     Route: 048
     Dates: start: 20110402, end: 20110415

REACTIONS (1)
  - SKIN ULCER [None]
